FAERS Safety Report 4316454-5 (Version None)
Quarter: 2004Q1

REPORT INFORMATION
  Report Type: 
  Country: None (occurrence: None)
  Receive Date: 20040311
  Receipt Date: 20040301
  Transmission Date: 20041129
  Serious: Yes (Death)
  Sender: FDA-Public Use
  Company Number: PHNU2003DE04094

PATIENT
  Sex: Male

DRUGS (7)
  1. LIORESAL [Suspect]
     Indication: MUSCLE SPASTICITY
     Dosage: SEE IMAGE, INTRATHECAL
     Route: 037
     Dates: start: 20030101, end: 20030101
  2. LIORESAL [Suspect]
     Indication: MUSCLE SPASTICITY
     Dosage: SEE IMAGE, INTRATHECAL
     Route: 037
     Dates: start: 20030801, end: 20030801
  3. LIORESAL [Suspect]
     Indication: MUSCLE SPASTICITY
     Dosage: SEE IMAGE, INTRATHECAL
     Route: 037
     Dates: start: 20030801, end: 20030901
  4. LIORESAL [Suspect]
     Indication: MUSCLE SPASTICITY
     Dosage: SEE IMAGE, INTRATHECAL
     Route: 037
     Dates: start: 20030901, end: 20031001
  5. LIORESAL [Suspect]
     Indication: MUSCLE SPASTICITY
     Dosage: SEE IMAGE, INTRATHECAL
     Route: 037
     Dates: start: 20031001, end: 20031001
  6. LIORESAL [Suspect]
     Indication: MUSCLE SPASTICITY
     Dosage: SEE IMAGE, INTRATHECAL
     Route: 037
     Dates: start: 20030101
  7. LIORESAL [Suspect]
     Indication: MUSCLE SPASTICITY
     Dosage: SEE IMAGE, INTRATHECAL
     Route: 037
     Dates: start: 20031001

REACTIONS (7)
  - DEVICE FAILURE [None]
  - DRUG INEFFECTIVE [None]
  - DRUG LEVEL FLUCTUATING [None]
  - DRUG WITHDRAWAL SYNDROME [None]
  - ELECTROENCEPHALOGRAM ABNORMAL [None]
  - MUSCLE SPASTICITY [None]
  - SUDDEN DEATH [None]
